FAERS Safety Report 8227438-9 (Version None)
Quarter: 2012Q1

REPORT INFORMATION
  Report Type: 
  Country: None (occurrence: None)
  Receive Date: 20120322
  Receipt Date: 20120314
  Transmission Date: 20120608
  Serious: Yes (Other)
  Sender: FDA-Public Use
  Company Number: US-SANOFI-AVENTIS-2011SA034415

PATIENT
  Age: 56 Year
  Sex: Female

DRUGS (5)
  1. FLUOXETINE [Concomitant]
  2. ALLEGRA [Suspect]
     Route: 048
     Dates: start: 20110526, end: 20110527
  3. ESTROGEN NOS [Concomitant]
  4. TESTOSTERONE [Concomitant]
  5. GUAIFENESIN AND DEXTROMETHORPHAN HBR [Concomitant]

REACTIONS (3)
  - LOSS OF CONSCIOUSNESS [None]
  - LETHARGY [None]
  - CONVULSION [None]
